FAERS Safety Report 21248577 (Version 1)
Quarter: 2022Q3

REPORT INFORMATION
  Report Type: Other
  Country: FR (occurrence: FR)
  Receive Date: 20220824
  Receipt Date: 20220824
  Transmission Date: 20221026
  Serious: Yes (Hospitalization)
  Sender: FDA-Public Use
  Company Number: None

PATIENT
  Age: 31 Year
  Sex: Male

DRUGS (1)
  1. RITUXIMAB [Suspect]
     Active Substance: RITUXIMAB
     Indication: Multiple sclerosis
     Dosage: LAST DOSE: MAY/2019
     Route: 041
     Dates: start: 20161010

REACTIONS (4)
  - Secondary syphilis [Recovering/Resolving]
  - Off label use [Unknown]
  - Hypogammaglobulinaemia [Unknown]
  - False negative investigation result [Recovered/Resolved]

NARRATIVE: CASE EVENT DATE: 20180703
